FAERS Safety Report 9671773 (Version 1)
Quarter: 2013Q4

REPORT INFORMATION
  Report Type: Spontaneous
  Country: TW (occurrence: TW)
  Receive Date: 20131106
  Receipt Date: 20131106
  Transmission Date: 20140711
  Serious: Yes (Death, Other)
  Sender: FDA-Public Use
  Company Number: PHHY2013TW122713

PATIENT
  Age: 76 Year
  Sex: Male

DRUGS (1)
  1. ALLOPURINOL [Suspect]

REACTIONS (2)
  - Legionella infection [Fatal]
  - Drug reaction with eosinophilia and systemic symptoms [Unknown]
